FAERS Safety Report 7571007-0 (Version None)
Quarter: 2011Q2

REPORT INFORMATION
  Report Type: 
  Country: None (occurrence: None)
  Receive Date: 20110624
  Receipt Date: 20110613
  Transmission Date: 20111010
  Serious: Yes (Other)
  Sender: FDA-Public Use
  Company Number: US-ROCHE-767775

PATIENT
  Sex: Male
  Weight: 99.4 kg

DRUGS (4)
  1. CAPECITABINE [Suspect]
     Indication: COLORECTAL CANCER
     Dosage: ONE WEEK ON AND ONE WEEK OFF
     Route: 048
     Dates: start: 20110201, end: 20110320
  2. ONDANSETRON [Concomitant]
     Indication: NAUSEA
     Dosage: AS NEEDED
     Route: 048
     Dates: start: 20110201
  3. CAPECITABINE [Suspect]
     Route: 048
     Dates: start: 20110328
  4. DOCUSATE [Concomitant]
     Indication: CONSTIPATION
     Dosage: AS NEEDED
     Route: 048
     Dates: start: 20110207

REACTIONS (8)
  - CHEST PAIN [None]
  - ORAL PAIN [None]
  - PAIN [None]
  - PAIN IN EXTREMITY [None]
  - FATIGUE [None]
  - CONSTIPATION [None]
  - DIZZINESS [None]
  - PAIN IN JAW [None]
